FAERS Safety Report 5724221-0 (Version None)
Quarter: 2008Q2

REPORT INFORMATION
  Report Type: 
  Country: None (occurrence: None)
  Receive Date: 20080430
  Receipt Date: 20080415
  Transmission Date: 20081010
  Serious: Yes (Hospitalization, Disabling)
  Sender: FDA-Public Use
  Company Number: FR-MERCK-0804FRA00028

PATIENT
  Age: 43 Year
  Sex: Male

DRUGS (17)
  1. RALTEGRAVIR POTASSIUM [Suspect]
     Indication: HIV INFECTION
     Route: 048
     Dates: start: 20080317, end: 20080326
  2. MARAVIROC [Concomitant]
     Indication: HIV INFECTION
     Route: 048
     Dates: start: 20080107
  3. DARUNAVIR [Concomitant]
     Indication: HIV INFECTION
     Route: 048
     Dates: start: 20071116
  4. RITONAVIR [Concomitant]
     Indication: HIV INFECTION
     Route: 048
     Dates: start: 20071116
  5. FLUOXETINE HYDROCHLORIDE [Concomitant]
     Indication: DEPRESSION
     Route: 048
     Dates: start: 20071116
  6. MORPHINE SULFATE [Concomitant]
     Indication: NEUROPATHY PERIPHERAL
     Route: 048
     Dates: start: 20071214
  7. MORPHINE SULFATE [Concomitant]
     Route: 048
     Dates: start: 20071214
  8. VALSARTAN [Concomitant]
     Indication: HYPERTENSION
     Route: 048
     Dates: start: 20080107
  9. FLUTICASONE PROPIONATE AND SALMETEROL XINAFOATE [Concomitant]
     Dates: start: 20080225
  10. VITAMIN E [Concomitant]
     Route: 048
     Dates: start: 20080107
  11. VITAMINS (UNSPECIFIED) [Concomitant]
     Route: 048
     Dates: start: 20080107
  12. SELENIUM (UNSPECIFIED) [Concomitant]
     Route: 048
     Dates: start: 20080107
  13. RIBOFLAVIN [Concomitant]
     Route: 048
     Dates: start: 20080107
  14. CHONDROITIN [Concomitant]
     Route: 048
     Dates: start: 20071116
  15. PREGABALIN [Concomitant]
     Route: 048
     Dates: start: 20070307
  16. ENFUVIRTIDE [Concomitant]
     Indication: HIV INFECTION
     Route: 058
     Dates: start: 20071130, end: 20080317
  17. ALBUTEROL [Concomitant]
     Dates: start: 20011204

REACTIONS (3)
  - CYTOLYTIC HEPATITIS [None]
  - DRUG ERUPTION [None]
  - FOLLICULITIS [None]
